FAERS Safety Report 4567838-1 (Version None)
Quarter: 2005Q1

REPORT INFORMATION
  Report Type: 
  Country: None (occurrence: None)
  Receive Date: 20050202
  Receipt Date: 20041025
  Transmission Date: 20050727
  Serious: No
  Sender: FDA-Public Use
  Company Number: US-GLAXOSMITHKLINE-A0531185A

PATIENT
  Age: 69 Year
  Sex: Female

DRUGS (2)
  1. AVANDAMET [Suspect]
     Dosage: 1MG THREE TIMES PER DAY
     Route: 048
     Dates: start: 20040802
  2. AMARYL [Concomitant]

REACTIONS (2)
  - DIARRHOEA [None]
  - NAUSEA [None]
